FAERS Safety Report 6157898-9 (Version None)
Quarter: 2009Q2

REPORT INFORMATION
  Report Type: 
  Country: None (occurrence: None)
  Receive Date: 20090417
  Receipt Date: 20070515
  Transmission Date: 20091009
  Serious: Yes (Hospitalization, Other)
  Sender: FDA-Public Use
  Company Number: US-ASTRAZENECA-2006UW10681

PATIENT
  Age: 11137 Day
  Sex: Female
  Weight: 57.6 kg

DRUGS (10)
  1. SEROQUEL [Suspect]
     Indication: BIPOLAR DISORDER
     Route: 048
     Dates: start: 20030101
  2. SEROQUEL [Suspect]
     Indication: DEPRESSION
     Route: 048
     Dates: start: 20030101
  3. SEROQUEL [Suspect]
     Indication: ANXIETY
     Route: 048
     Dates: start: 20030101
  4. SEROQUEL [Suspect]
     Route: 048
     Dates: start: 20041215
  5. SEROQUEL [Suspect]
     Route: 048
     Dates: start: 20041215
  6. SEROQUEL [Suspect]
     Route: 048
     Dates: start: 20041215
  7. CELEXA [Concomitant]
  8. WELLBUTRIN SR [Concomitant]
  9. ATIVAN [Concomitant]
  10. NEURONTIN [Concomitant]

REACTIONS (22)
  - AGORAPHOBIA [None]
  - ANXIETY [None]
  - DIABETES MELLITUS [None]
  - DIABETIC KETOACIDOSIS [None]
  - DIZZINESS [None]
  - DYSPNOEA [None]
  - HALLUCINATION, VISUAL [None]
  - HEART RATE INCREASED [None]
  - INSOMNIA [None]
  - LACERATION [None]
  - MAJOR DEPRESSION [None]
  - METABOLIC ACIDOSIS [None]
  - NAUSEA [None]
  - NIGHTMARE [None]
  - OTITIS EXTERNA [None]
  - PANIC ATTACK [None]
  - POST-TRAUMATIC STRESS DISORDER [None]
  - SCOLIOSIS [None]
  - SUICIDAL IDEATION [None]
  - VAGINAL INFECTION [None]
  - VOMITING [None]
  - WEIGHT INCREASED [None]
